FAERS Safety Report 4967561-5 (Version None)
Quarter: 2006Q2

REPORT INFORMATION
  Report Type: 
  Country: None (occurrence: None)
  Receive Date: 20060410
  Receipt Date: 20060331
  Transmission Date: 20061013
  Serious: Yes (Hospitalization)
  Sender: FDA-Public Use
  Company Number: FR-GLAXOSMITHKLINE-B0419318A

PATIENT
  Age: 8 Year
  Sex: Male

DRUGS (1)
  1. SERETIDE [Suspect]
     Route: 055
     Dates: start: 20051201, end: 20051201

REACTIONS (2)
  - DERMATITIS ALLERGIC [None]
  - SKIN EXFOLIATION [None]
